FAERS Safety Report 12330612 (Version 1)
Quarter: 2016Q2

REPORT INFORMATION
  Report Type: Spontaneous
  Country: US (occurrence: None)
  Receive Date: 20160503
  Receipt Date: 20160503
  Transmission Date: 20160815
  Serious: Yes (Hospitalization)
  Sender: FDA-Public Use
  Company Number: None

PATIENT
  Age: 53 Year
  Sex: Female
  Weight: 128 kg

DRUGS (26)
  1. HUMULIN R [Concomitant]
     Active Substance: INSULIN HUMAN
  2. LYRICA [Concomitant]
     Active Substance: PREGABALIN
  3. NEXIUM [Concomitant]
     Active Substance: ESOMEPRAZOLE MAGNESIUM
  4. NORCO [Concomitant]
     Active Substance: ACETAMINOPHEN\HYDROCODONE BITARTRATE
  5. PAZEO [Concomitant]
     Active Substance: OLOPATADINE HYDROCHLORIDE
  6. ALBUTEROL. [Concomitant]
     Active Substance: ALBUTEROL
  7. XELJANZ [Suspect]
     Active Substance: TOFACITINIB CITRATE
     Indication: RHEUMATOID ARTHRITIS
     Route: 048
     Dates: start: 20160412, end: 20160421
  8. HUMALOG [Concomitant]
     Active Substance: INSULIN LISPRO
  9. LASIX [Concomitant]
     Active Substance: FUROSEMIDE
  10. CALCIUM W/VITAMIN D [Concomitant]
     Active Substance: CALCIUM\VITAMIN D
  11. METAMUCIL [Concomitant]
     Active Substance: PLANTAGO SEED
  12. METFORMIN [Concomitant]
     Active Substance: METFORMIN HYDROCHLORIDE
  13. XANAX [Concomitant]
     Active Substance: ALPRAZOLAM
  14. CYMBALTA [Concomitant]
     Active Substance: DULOXETINE HYDROCHLORIDE
  15. NORTRIPTYLINE [Concomitant]
     Active Substance: NORTRIPTYLINE
  16. LOPRESSOR [Concomitant]
     Active Substance: METOPROLOL TARTRATE
  17. BYURDEON [Concomitant]
  18. MVI [Concomitant]
     Active Substance: VITAMINS
  19. KCL [Concomitant]
     Active Substance: POTASSIUM CHLORIDE
  20. SYMBICORT [Concomitant]
     Active Substance: BUDESONIDE\FORMOTEROL FUMARATE DIHYDRATE
  21. SPIRIVA [Concomitant]
     Active Substance: TIOTROPIUM BROMIDE MONOHYDRATE
  22. PREDNISONE. [Concomitant]
     Active Substance: PREDNISONE
  23. LIPITOR [Concomitant]
     Active Substance: ATORVASTATIN CALCIUM
  24. FLONASE [Concomitant]
     Active Substance: FLUTICASONE PROPIONATE
  25. FERROUS SULFATE. [Concomitant]
     Active Substance: FERROUS SULFATE
  26. LOSARTAN/;HCTZ [Concomitant]

REACTIONS (3)
  - Hypoaesthesia [None]
  - Swollen tongue [None]
  - Hypersensitivity [None]

NARRATIVE: CASE EVENT DATE: 20160430
